FAERS Safety Report 14078511 (Version 5)
Quarter: 2018Q1

REPORT INFORMATION
  Report Type: Report from Study
  Country: BR (occurrence: BR)
  Receive Date: 20171012
  Receipt Date: 20180129
  Transmission Date: 20180508
  Serious: Yes (Other)
  Sender: FDA-Public Use
  Company Number: PHHY2017BR146874

PATIENT
  Age: 37 Year
  Sex: Male
  Weight: 78 kg

DRUGS (2)
  1. SOMAVERT [Concomitant]
     Active Substance: PEGVISOMANT
     Indication: ACROMEGALY
     Dosage: (1 APPLICATION A DAY)
     Route: 065
  2. SANDOSTATIN LAR DEPOT [Suspect]
     Active Substance: OCTREOTIDE ACETATE
     Indication: ACROMEGALY
     Dosage: 30 MG, QMO (EVERY 28 DAYS)
     Route: 030
     Dates: start: 200503

REACTIONS (6)
  - Benign ear neoplasm [Unknown]
  - Neoplasm [Not Recovered/Not Resolved]
  - Brain neoplasm [Unknown]
  - Facial paralysis [Recovering/Resolving]
  - Ophthalmoplegia [Unknown]
  - Paralysis [Recovered/Resolved]

NARRATIVE: CASE EVENT DATE: 201703
